FAERS Safety Report 16180992 (Version 1)
Quarter: 2019Q2

REPORT INFORMATION
  Report Type: Spontaneous
  Country: DK (occurrence: DK)
  Receive Date: 20190410
  Receipt Date: 20190410
  Transmission Date: 20190711
  Serious: Yes (Other)
  Sender: FDA-Public Use
  Company Number: DK-ABBVIE-19K-044-2738967-00

PATIENT
  Age: 38 Year
  Sex: Female

DRUGS (5)
  1. CALCIUM + VITAMIN D [Concomitant]
     Active Substance: CALCIUM\VITAMIN D
     Indication: MINERAL SUPPLEMENTATION
     Dosage: STYRKE: 400 MG + 19 MIKROGRAM.
     Route: 064
     Dates: start: 20180405
  2. COLESEVELAM [Concomitant]
     Active Substance: COLESEVELAM
     Indication: DIARRHOEA
     Dosage: STYRKE: 625 MG.
     Route: 064
     Dates: start: 20180622
  3. HUMIRA [Suspect]
     Active Substance: ADALIMUMAB
     Indication: CROHN^S DISEASE
     Route: 058
     Dates: start: 20180413
  4. SUMATRIPTAN. [Concomitant]
     Active Substance: SUMATRIPTAN
     Indication: MIGRAINE
     Dosage: STYRKE: 100 MG.
     Route: 064
     Dates: start: 20170809
  5. VIBEDEN [Concomitant]
     Indication: VITAMIN B12 DEFICIENCY
     Dosage: STYRKE: 1 MG/ML.
     Route: 064
     Dates: start: 20180202

REACTIONS (2)
  - Exposure during pregnancy [Unknown]
  - Abortion induced complete [Unknown]

NARRATIVE: CASE EVENT DATE: 2019
